FAERS Safety Report 6227745-5 (Version None)
Quarter: 2009Q2

REPORT INFORMATION
  Report Type: 
  Country: None (occurrence: None)
  Receive Date: 20090612
  Receipt Date: 20090514
  Transmission Date: 20091009
  Serious: Yes (Hospitalization)
  Sender: FDA-Public Use
  Company Number: JP-PFIZER INC-2009221576

PATIENT
  Age: 60 Year

DRUGS (9)
  1. IRINOTECAN HCL [Suspect]
     Indication: COLON CANCER
     Dosage: 180 MG/M2, 1 IN 2 WEEKS
     Route: 042
     Dates: start: 20081119, end: 20081119
  2. IRINOTECAN HCL [Suspect]
     Dosage: 150 MG/M2, 1 IN 2 WEEKS
     Route: 042
     Dates: start: 20081210
  3. CETUXIMAB [Suspect]
     Indication: COLON CANCER
     Dosage: 400 MG/M2 ONCE
     Route: 042
     Dates: start: 20081119, end: 20081119
  4. CETUXIMAB [Suspect]
     Dosage: 250 MG/M2,ONCE, 1 IN 1 WEEK
     Route: 042
     Dates: start: 20081203
  5. POLARAMINE [Concomitant]
     Indication: PREMEDICATION
     Dosage: 5 MG, 1 IN 1 WEEK
     Route: 042
     Dates: start: 20081119
  6. DECADRON [Concomitant]
     Indication: PREMEDICATION
     Dosage: 16 MG, 1 IN 1 WEEK
     Route: 042
     Dates: start: 20081119
  7. VOLTAREN [Concomitant]
     Indication: PREMEDICATION
     Dosage: 25 MG, ONCE
     Route: 054
     Dates: start: 20081119, end: 20081119
  8. KYTRIL [Concomitant]
     Indication: ANTIEMETIC SUPPORTIVE CARE
     Dosage: 3 MG, UNK
     Route: 042
     Dates: start: 20081119
  9. BUSCOPAN [Concomitant]
     Dosage: 20 MG, UNK
     Route: 042
     Dates: start: 20081119

REACTIONS (1)
  - PNEUMATOSIS INTESTINALIS [None]
